FAERS Safety Report 21711034 (Version 1)
Quarter: 2022Q4

REPORT INFORMATION
  Report Type: Spontaneous
  Country: US (occurrence: US)
  Receive Date: 20221212
  Receipt Date: 20221212
  Transmission Date: 20230112
  Serious: Yes (Other)
  Sender: FDA-Public Use
  Company Number: US-SA-SAC20221209000716

PATIENT
  Sex: Male

DRUGS (6)
  1. DUPIXENT [Suspect]
     Active Substance: DUPILUMAB
     Indication: Dermatitis atopic
     Dosage: 300 MG QOW
     Route: 058
  2. TIMOLOL [Concomitant]
     Active Substance: TIMOLOL
  3. ALLOPURINOL [Concomitant]
     Active Substance: ALLOPURINOL
  4. CLOBETASOL [Concomitant]
     Active Substance: CLOBETASOL
  5. SIMVASTATIN [Concomitant]
     Active Substance: SIMVASTATIN
  6. TRIAMCINOLONE [Concomitant]
     Active Substance: TRIAMCINOLONE

REACTIONS (2)
  - Macular degeneration [Unknown]
  - Neoplasm malignant [Unknown]
